FAERS Safety Report 14300130 (Version 2)
Quarter: 2020Q1

REPORT INFORMATION
  Report Type: Spontaneous
  Country: RO (occurrence: RO)
  Receive Date: 20171219
  Receipt Date: 20200211
  Transmission Date: 20200409
  Serious: Yes (Hospitalization, Other)
  Sender: FDA-Public Use
  Company Number: RO-SUN PHARMACEUTICAL INDUSTRIES LTD-2017RR-157409

PATIENT
  Age: 30 Month
  Sex: Female

DRUGS (3)
  1. PARACETAMOL [Suspect]
     Active Substance: ACETAMINOPHEN
     Indication: PRODUCT USED FOR UNKNOWN INDICATION
     Dosage: UNK
     Route: 065
  2. FUROSEMIDE. [Suspect]
     Active Substance: FUROSEMIDE
     Indication: ACUTE KIDNEY INJURY
     Dosage: 2 MILLIGRAM/KILOGRAM, UNK
     Route: 065
  3. ASPIRIN. [Suspect]
     Active Substance: ASPIRIN
     Indication: THROMBOCYTOPENIA
     Dosage: 8 MILLIGRAM/KILOGRAM, DAILY
     Route: 048

REACTIONS (6)
  - Product administration error [Unknown]
  - Product use in unapproved indication [Unknown]
  - Off label use [Unknown]
  - Oliguria [Recovered/Resolved]
  - Anaemia [Unknown]
  - Therapeutic response unexpected [Unknown]
